FAERS Safety Report 21755270 (Version 1)
Quarter: 2022Q4

REPORT INFORMATION
  Report Type: Spontaneous
  Country: US (occurrence: US)
  Receive Date: 20221220
  Receipt Date: 20221220
  Transmission Date: 20230113
  Serious: No
  Sender: FDA-Public Use
  Company Number: US-RECKITT BENCKISER HEALTHCARE INT LIMITED-RB-098364-2022

PATIENT
  Age: 75 Year
  Sex: Female

DRUGS (3)
  1. DELSYM [Suspect]
     Active Substance: DEXTROMETHORPHAN
     Indication: Cough
     Dosage: THE PATIENT TOOK TWO DOSAGE FORM, THE PATIENT WAS ONLY TAKING ONE DOSE A DAY.
     Route: 048
     Dates: start: 20220908
  2. Levothyroxine and liothyronine [Concomitant]
     Indication: Oropharyngeal pain
     Dosage: UNKNOWN
     Route: 065
  3. Levothyroxine and liothyronine [Concomitant]
     Indication: Hypothyroidism

REACTIONS (2)
  - Vision blurred [Not Recovered/Not Resolved]
  - Product use in unapproved indication [Unknown]

NARRATIVE: CASE EVENT DATE: 20220911
